FAERS Safety Report 24090499 (Version 1)
Quarter: 2024Q3

REPORT INFORMATION
  Report Type: Spontaneous
  Country: US (occurrence: None)
  Receive Date: 20240712
  Receipt Date: 20240712
  Transmission Date: 20241017
  Serious: Yes (Other)
  Sender: Public
  Company Number: None

PATIENT
  Age: 61 Year
  Sex: Female

DRUGS (1)
  1. OZEMPIC [Suspect]
     Active Substance: SEMAGLUTIDE
     Dosage: 0.5 MG EVERY WEEK SUBCUTANEOUS?
     Route: 058
     Dates: start: 20240202, end: 20240706

REACTIONS (1)
  - Constipation [None]

NARRATIVE: CASE EVENT DATE: 20240706
